FAERS Safety Report 23548258 (Version 1)
Quarter: 2024Q1

REPORT INFORMATION
  Report Type: Spontaneous
  Country: US (occurrence: None)
  Receive Date: 20240220
  Receipt Date: 20240220
  Transmission Date: 20240410
  Serious: Yes (Other)
  Sender: FDA-Public Use
  Company Number: None

PATIENT
  Sex: Female

DRUGS (3)
  1. AMBRISENTAN [Suspect]
     Active Substance: AMBRISENTAN
     Indication: Pulmonary hypertension
     Dosage: FREQUENCY : DAILY;?
     Route: 048
     Dates: start: 20231207
  2. ASPIRIN [Concomitant]
     Active Substance: ASPIRIN
  3. GAS-X [Concomitant]
     Active Substance: DIMETHICONE

REACTIONS (2)
  - Therapy interrupted [None]
  - Emergency care [None]
